FAERS Safety Report 7900216-3 (Version None)
Quarter: 2011Q4

REPORT INFORMATION
  Report Type: 
  Country: None (occurrence: None)
  Receive Date: 20111101
  Receipt Date: 20110715
  Transmission Date: 20120403
  Serious: Yes (Other)
  Sender: FDA-Public Use
  Company Number: 290828USA

PATIENT
  Sex: Male

DRUGS (1)
  1. CLONAZEPAM [Suspect]
     Dosage: 2 MG (1 MG, 2 IN 1 D);

REACTIONS (7)
  - HEADACHE [None]
  - ANXIETY [None]
  - CONVULSION [None]
  - TONGUE BITING [None]
  - FEELING ABNORMAL [None]
  - PAIN IN EXTREMITY [None]
  - DISORIENTATION [None]
